FAERS Safety Report 14317249 (Version 3)
Quarter: 2018Q1

REPORT INFORMATION
  Report Type: Spontaneous
  Country: PT (occurrence: PT)
  Receive Date: 20171222
  Receipt Date: 20180323
  Transmission Date: 20180509
  Serious: Yes (Other)
  Sender: FDA-Public Use
  Company Number: PT-AUROBINDO-AUR-APL-2017-46083

PATIENT
  Age: 78 Year
  Sex: Female

DRUGS (2)
  1. SERTRALINE [Suspect]
     Active Substance: SERTRALINE HYDROCHLORIDE
     Indication: DEPRESSION
     Dosage: 50 MG, DAILY
     Route: 065
  2. SERTRALINE [Suspect]
     Active Substance: SERTRALINE HYDROCHLORIDE
     Dosage: UNK ()
     Route: 065

REACTIONS (6)
  - Dyskinesia [Recovered/Resolved]
  - Discomfort [Recovered/Resolved]
  - Emotional distress [Unknown]
  - Excessive eye blinking [Recovered/Resolved]
  - Dystonia [Recovered/Resolved]
  - Tic [Recovered/Resolved]
